FAERS Safety Report 4951803-6 (Version None)
Quarter: 2006Q1

REPORT INFORMATION
  Report Type: 
  Country: None (occurrence: None)
  Receive Date: 20060322
  Receipt Date: 20060322
  Transmission Date: 20060701
  Serious: No
  Sender: FDA-Public Use
  Company Number: None

PATIENT
  Age: 39 Year
  Sex: Female
  Weight: 60.782 kg

DRUGS (1)
  1. AMBIEN [Suspect]
     Indication: SLEEP DISORDER
     Dosage: 1 AT BEDTIME 1 AT BEDTIME
     Dates: start: 20050701

REACTIONS (2)
  - AMNESIA [None]
  - INSOMNIA [None]
